FAERS Safety Report 9148976 (Version 1)
Quarter: 2013Q1

REPORT INFORMATION
  Report Type: Spontaneous
  Country: ZA (occurrence: None)
  Receive Date: 20130304
  Receipt Date: 20130304
  Transmission Date: 20140127
  Serious: Yes (Death, Hospitalization)
  Sender: FDA-Public Use
  Company Number: B0871487A

PATIENT
  Age: 6 Year
  Sex: Male

DRUGS (11)
  1. LAMIVUDINE-HIV [Suspect]
     Indication: HIV INFECTION
  2. STAVUDINE [Suspect]
     Indication: HIV INFECTION
  3. EFAVIRENZ [Suspect]
     Indication: HIV INFECTION
  4. PYRIDOXINE [Concomitant]
  5. CO-TRIMOXAZOLE [Concomitant]
  6. STEROID [Concomitant]
  7. RIFAMPICIN [Concomitant]
  8. ISONIAZID [Concomitant]
  9. ETHAMBUTOL [Concomitant]
  10. PYRAZINAMIDE [Concomitant]
  11. PREDNISOLONE [Concomitant]

REACTIONS (12)
  - Immune reconstitution inflammatory syndrome [None]
  - Confusional state [None]
  - Pyrexia [None]
  - Somnolence [None]
  - Neck pain [None]
  - Vomiting [None]
  - Photophobia [None]
  - Intracranial pressure increased [None]
  - Hepatomegaly [None]
  - Musculoskeletal stiffness [None]
  - Oral candidiasis [None]
  - Meningism [None]
